FAERS Safety Report 7384625-X (Version None)
Quarter: 2011Q1

REPORT INFORMATION
  Report Type: 
  Country: None (occurrence: None)
  Receive Date: 20110330
  Receipt Date: 20110301
  Transmission Date: 20110831
  Serious: No
  Sender: FDA-Public Use
  Company Number: US-BAYER-2011-020224

PATIENT
  Sex: Female
  Weight: 60 kg

DRUGS (6)
  1. LISINOPRIL HYDROCHLORTHIAZID [Concomitant]
     Dosage: UNK UNK, QD
     Route: 048
  2. CLONIDINE [Concomitant]
     Dosage: 1 DF, QD
     Route: 048
  3. ALEVE (CAPLET) [Suspect]
     Indication: ARTHRITIS
     Dosage: 440 MG, BID
     Route: 048
  4. MULTI-VITAMIN [Concomitant]
     Dosage: UNK
     Route: 048
  5. BIOTIN [Concomitant]
     Dosage: UNK
     Route: 048
  6. OSCAL [CALCIUM CARBONATE,VITAMIN D NOS] [Concomitant]
     Dosage: UNK
     Route: 048

REACTIONS (1)
  - NO ADVERSE EVENT [None]
